FAERS Safety Report 7241397-7 (Version None)
Quarter: 2011Q1

REPORT INFORMATION
  Report Type: 
  Country: None (occurrence: None)
  Receive Date: 20110124
  Receipt Date: 20110114
  Transmission Date: 20110831
  Serious: Yes (Hospitalization)
  Sender: FDA-Public Use
  Company Number: FR-ROCHE-753529

PATIENT
  Sex: Female

DRUGS (3)
  1. CELLCEPT [Suspect]
     Route: 048
     Dates: start: 20101217
  2. PREDNISONE [Suspect]
     Dosage: FREQUENCY: DAILY
     Route: 048
     Dates: start: 20100201
  3. CELLCEPT [Suspect]
     Route: 048
     Dates: start: 20100501, end: 20101117

REACTIONS (4)
  - PYELONEPHRITIS [None]
  - PNEUMONIA [None]
  - CYTOMEGALOVIRUS INFECTION [None]
  - ARTHRITIS [None]
